FAERS Safety Report 15191611 (Version 4)
Quarter: 2019Q2

REPORT INFORMATION
  Report Type: Report from Study
  Country: DE (occurrence: DE)
  Receive Date: 20180724
  Receipt Date: 20190427
  Transmission Date: 20190711
  Serious: Yes (Hospitalization, Other)
  Sender: FDA-Public Use
  Company Number: DE-UCBSA-2017009194

PATIENT
  Age: 69 Year
  Sex: Female

DRUGS (6)
  1. ROTIGOTINE [Suspect]
     Active Substance: ROTIGOTINE
     Indication: RESTLESS LEGS SYNDROME
     Dosage: 2 MG, UNK
     Route: 062
     Dates: start: 20170210
  2. TAPENTADOL [Concomitant]
     Active Substance: TAPENTADOL
     Indication: PRODUCT USED FOR UNKNOWN INDICATION
  3. ROTIGOTINE [Suspect]
     Active Substance: ROTIGOTINE
     Dosage: 1 MG, ONCE DAILY (QD)
     Route: 062
  4. ROTIGOTINE [Suspect]
     Active Substance: ROTIGOTINE
     Dosage: 4 MG, ONCE DAILY (QD)
     Route: 062
  5. ROTIGOTINE [Suspect]
     Active Substance: ROTIGOTINE
     Dosage: 6 MILLIGRAM, ONCE DAILY (QD)
     Route: 062
  6. RESTEX [Concomitant]
     Active Substance: BENSERAZIDE\LEVODOPA
     Indication: RESTLESS LEGS SYNDROME

REACTIONS (10)
  - Myocardial rupture [Recovering/Resolving]
  - Thrombosis [Recovered/Resolved]
  - Blood pressure fluctuation [Not Recovered/Not Resolved]
  - Application site pruritus [Recovered/Resolved]
  - Restless legs syndrome [Not Recovered/Not Resolved]
  - Arrhythmia [Recovered/Resolved]
  - Hypotonia [Recovered/Resolved]
  - Drug ineffective [Unknown]
  - Overdose [Unknown]
  - Off label use [Unknown]

NARRATIVE: CASE EVENT DATE: 20170301
